FAERS Safety Report 4823858-0 (Version None)
Quarter: 2005Q4

REPORT INFORMATION
  Report Type: 
  Country: None (occurrence: None)
  Receive Date: 20051028
  Receipt Date: 20051014
  Transmission Date: 20060501
  Serious: Yes (Hospitalization, Other)
  Sender: FDA-Public Use
  Company Number: 2005144069

PATIENT
  Age: 71 Year
  Sex: Female

DRUGS (5)
  1. ANTITHYMOCYTE IMMUNOGLOBULIN SOLUTION, STERILE (ANTITHYMOCYTE IMMUNOGL [Suspect]
     Indication: MYELODYSPLASTIC SYNDROME
     Dosage: 3350 MG
     Dates: start: 20010508
  2. CYCLOSPORINE [Suspect]
     Indication: MYELODYSPLASTIC SYNDROME
     Dosage: 250 MG
     Dates: start: 20010508
  3. SOLU-MEDROL [Suspect]
     Indication: MYELODYSPLASTIC SYNDROME
     Dosage: 125 MG
     Dates: start: 20010508
  4. EVISTA [Concomitant]
  5. NADOLOL [Concomitant]

REACTIONS (4)
  - LUNG INFILTRATION [None]
  - PULMONARY CONGESTION [None]
  - PULMONARY OEDEMA [None]
  - RESPIRATORY FAILURE [None]
